FAERS Safety Report 9275631 (Version 1)
Quarter: 2013Q1

REPORT INFORMATION
  Report Type: Spontaneous
  Country: FR (occurrence: None)
  Receive Date: 20121109
  Receipt Date: 20121109
  Transmission Date: 20140127
  Serious: Yes (Other)
  Sender: FDA-Public Use
  Company Number: 2012S1000126

PATIENT
  Age: 87 Year
  Sex: Male
  Weight: 66.5 kg

DRUGS (2)
  1. CUBICIN (DAPTOMYCIN) [Suspect]
     Indication: INTERVERTEBRAL DISCITIS
     Route: 042
     Dates: start: 20111226
  2. CUBICIN (DAPTOMYCIN) [Suspect]
     Indication: BACTERAEMIA
     Route: 042
     Dates: start: 20111226

REACTIONS (3)
  - Lung infection [None]
  - Hyponatraemia [None]
  - Blood creatine phosphokinase increased [None]
